FAERS Safety Report 8429796 (Version 5)
Quarter: 2013Q3

REPORT INFORMATION
  Report Type: Report from Study
  Country: IT (occurrence: IT)
  Receive Date: 20120228
  Receipt Date: 20130701
  Transmission Date: 20140515
  Serious: Yes (Hospitalization)
  Sender: FDA-Public Use
  Company Number: IT-JNJFOC-20120210641

PATIENT
  Age: 12 Year
  Sex: Female
  Weight: 44.8 kg

DRUGS (1)
  1. REMICADE [Suspect]
     Indication: CROHN^S DISEASE
     Route: 042
     Dates: start: 20120130

REACTIONS (3)
  - Crohn^s disease [Recovered/Resolved]
  - Pancreatic enzymes increased [Recovered/Resolved]
  - Pancreatitis [Recovered/Resolved]
